FAERS Safety Report 14166704 (Version 2)
Quarter: 2017Q4

REPORT INFORMATION
  Report Type: Spontaneous
  Country: SI (occurrence: SI)
  Receive Date: 20171107
  Receipt Date: 20171130
  Transmission Date: 20180321
  Serious: Yes (Other)
  Sender: FDA-Public Use
  Company Number: SI-GILEAD-2017-0302376

PATIENT
  Sex: Male

DRUGS (1)
  1. DESCOVY [Suspect]
     Active Substance: EMTRICITABINE\TENOFOVIR ALAFENAMIDE FUMARATE
     Indication: HIV INFECTION
     Dosage: UNK
     Route: 048
     Dates: start: 201706

REACTIONS (8)
  - Virologic failure [Unknown]
  - Asthenia [Unknown]
  - Weight decreased [Unknown]
  - Pain in extremity [Unknown]
  - Fungal oesophagitis [Unknown]
  - Dysphagia [Unknown]
  - Treatment noncompliance [Unknown]
  - Malaise [Unknown]

NARRATIVE: CASE EVENT DATE: 201706
